FAERS Safety Report 20055898 (Version 1)
Quarter: 2021Q4

REPORT INFORMATION
  Report Type: Spontaneous
  Country: NP (occurrence: NP)
  Receive Date: 20211111
  Receipt Date: 20211111
  Transmission Date: 20220303
  Serious: Yes (Hospitalization, Other)
  Sender: FDA-Public Use
  Company Number: NP-IPCA LABORATORIES LIMITED-IPC-2021-NP-001866

PATIENT

DRUGS (2)
  1. METOCLOPRAMIDE [Suspect]
     Active Substance: METOCLOPRAMIDE
     Indication: Acid peptic disease
     Dosage: 10 MILLIGRAM, TID (TABLET)
     Route: 048
     Dates: start: 20191223
  2. PANTOPRAZOLE [Concomitant]
     Active Substance: PANTOPRAZOLE
     Indication: Acid peptic disease
     Dosage: 40 MILLIGRAM, QD
     Route: 048
     Dates: start: 20191223

REACTIONS (4)
  - Dystonia [Recovering/Resolving]
  - Muscle twitching [Recovering/Resolving]
  - Dysarthria [Recovering/Resolving]
  - Protrusion tongue [Recovering/Resolving]

NARRATIVE: CASE EVENT DATE: 20191224
